FAERS Safety Report 4391822-4 (Version None)
Quarter: 2004Q3

REPORT INFORMATION
  Report Type: 
  Country: None (occurrence: None)
  Receive Date: 20040702
  Receipt Date: 20040519
  Transmission Date: 20050211
  Serious: Yes (Other)
  Sender: FDA-Public Use
  Company Number: 2004UW06804

PATIENT
  Age: 37 Year
  Sex: Female
  Weight: 91.173 kg

DRUGS (2)
  1. CRESTOR [Suspect]
     Indication: HYPERCHOLESTEROLAEMIA
     Dosage: 10 MG QD PO
     Route: 048
     Dates: start: 20040128
  2. BENICAR [Concomitant]

REACTIONS (4)
  - ASTHENIA [None]
  - DEHYDRATION [None]
  - HYPERTENSION [None]
  - VIRAL UPPER RESPIRATORY TRACT INFECTION [None]
